FAERS Safety Report 26203192 (Version 1)
Quarter: 2025Q4

REPORT INFORMATION
  Report Type: Spontaneous
  Country: BY (occurrence: BY)
  Receive Date: 20251226
  Receipt Date: 20251226
  Transmission Date: 20260117
  Serious: Yes (Death, Hospitalization, Other)
  Sender: SANDOZ
  Company Number: BY-SANDOZ-SDZ2025BY097436

PATIENT
  Age: 40 Year
  Sex: Female

DRUGS (3)
  1. METHOTREXATE [Suspect]
     Active Substance: METHOTREXATE
     Indication: Psoriasis
     Dosage: 1 DF (METHOTREXATE 5 MG)
     Dates: start: 20250529, end: 20250529
  2. METHOTREXATE [Suspect]
     Active Substance: METHOTREXATE
     Dosage: 1 DF, TID FOR TWO DAYS (METHOTREXATE 5 MG)
     Dates: start: 20250530, end: 20250531
  3. METHOTREXATE [Suspect]
     Active Substance: METHOTREXATE
     Indication: Product used for unknown indication
     Dosage: 9STRENGTH: 20 MG)

REACTIONS (15)
  - Death [Fatal]
  - Condition aggravated [Fatal]
  - Pain [Fatal]
  - Generalised pustular psoriasis [Fatal]
  - Pancytopenia [Fatal]
  - Hepatitis toxic [Fatal]
  - Cholestasis [Fatal]
  - Nephropathy toxic [Fatal]
  - Drug hypersensitivity [Fatal]
  - Tongue coated [Fatal]
  - Leukopenia [Fatal]
  - Stevens-Johnson syndrome [Fatal]
  - Sepsis [Fatal]
  - Toxic epidermal necrolysis [Fatal]
  - Circumstance or information capable of leading to medication error [Unknown]
